FAERS Safety Report 11203696 (Version 2)
Quarter: 2015Q3

REPORT INFORMATION
  Report Type: Spontaneous
  Country: US (occurrence: US)
  Receive Date: 20150619
  Receipt Date: 20150803
  Transmission Date: 20151125
  Serious: Yes (Hospitalization, Other)
  Sender: FDA-Public Use
  Company Number: US-TAKEDA-2015TUS007960

PATIENT
  Sex: Male

DRUGS (3)
  1. COLCRYS [Suspect]
     Active Substance: COLCHICINE
     Indication: PRODUCT USED FOR UNKNOWN INDICATION
     Dosage: UNK
     Route: 065
  2. ULORIC [Suspect]
     Active Substance: FEBUXOSTAT
     Dosage: UNK
     Route: 065
     Dates: start: 20150526
  3. ULORIC [Suspect]
     Active Substance: FEBUXOSTAT
     Indication: GOUT
     Dosage: UNK
     Route: 065
     Dates: start: 201503, end: 20150430

REACTIONS (5)
  - Thrombosis [Unknown]
  - Muscle spasms [Not Recovered/Not Resolved]
  - Incoherent [Unknown]
  - Arthritis infective [Unknown]
  - Chondrocalcinosis pyrophosphate [Unknown]

NARRATIVE: CASE EVENT DATE: 20150430
